FAERS Safety Report 6313057-8 (Version None)
Quarter: 2009Q3

REPORT INFORMATION
  Report Type: 
  Country: None (occurrence: None)
  Receive Date: 20090814
  Receipt Date: 20090731
  Transmission Date: 20100115
  Serious: No
  Sender: FDA-Public Use
  Company Number: 8044479

PATIENT
  Age: 73 Year
  Sex: Female
  Weight: 58.06 kg

DRUGS (6)
  1. CIMZIA [Suspect]
     Indication: CROHN'S DISEASE
     Dosage: 400 MG 1/2W SC
     Route: 058
     Dates: start: 20090301
  2. ENTOCORT EC [Concomitant]
  3. PENTASA [Concomitant]
  4. INEXIUM [Concomitant]
  5. PROPRANOLOL [Concomitant]
  6. OXYTROL [Concomitant]

REACTIONS (6)
  - BLOOD PRESSURE DECREASED [None]
  - FATIGUE [None]
  - HYPERHIDROSIS [None]
  - LOSS OF CONSCIOUSNESS [None]
  - PRESYNCOPE [None]
  - RASH [None]
